FAERS Safety Report 6165464-4 (Version None)
Quarter: 2009Q2

REPORT INFORMATION
  Report Type: 
  Country: None (occurrence: None)
  Receive Date: 20090421
  Receipt Date: 20090421
  Transmission Date: 20091009
  Serious: Yes (Other)
  Sender: FDA-Public Use
  Company Number: None

PATIENT
  Sex: Male
  Weight: 74.8435 kg

DRUGS (2)
  1. TRIAMTERENE W/ HYDROCHLOROTHIAZIDE [Suspect]
     Indication: HYPERTENSION
     Dosage: ONE TABLET DAILY IN MORNING, 3 TIMES
     Dates: start: 20081111, end: 20081115
  2. TRIAMTERENE W/ HYDROCHLOROTHIAZIDE [Suspect]
     Indication: HYPERTENSION
     Dosage: ONE TABLET DAILY IN MORNING, 3 TIMES
     Dates: start: 20090201, end: 20090205

REACTIONS (3)
  - DIZZINESS [None]
  - FALL [None]
  - JOINT INJURY [None]
